FAERS Safety Report 8617939 (Version 2)
Quarter: 2013Q3

REPORT INFORMATION
  Report Type: Report from Study
  Country: US (occurrence: US)
  Receive Date: 20120615
  Receipt Date: 20130902
  Transmission Date: 20140515
  Serious: Yes (Hospitalization, Other)
  Sender: FDA-Public Use
  Company Number: US-ELI_LILLY_AND_COMPANY-US201206003055

PATIENT
  Age: 16 Year
  Sex: Female

DRUGS (3)
  1. SOMATROPIN [Suspect]
     Indication: TURNER^S SYNDROME
     Dosage: 1.8 MG, UNKNOWN
     Route: 065
     Dates: start: 2008
  2. SOMATROPIN [Suspect]
     Dosage: 2.2 MG, QD
     Route: 065
  3. IMMUNOGLOBULIN G HUMAN [Suspect]
     Indication: PRIMARY IMMUNODEFICIENCY SYNDROME
     Dosage: UNK
     Route: 042
     Dates: start: 201307

REACTIONS (8)
  - Pharyngitis streptococcal [Unknown]
  - Ear infection [Unknown]
  - Primary immunodeficiency syndrome [Unknown]
  - Abdominal pain upper [Unknown]
  - Nausea [Unknown]
  - Fatigue [Unknown]
  - Drug dose omission [Unknown]
  - Headache [Unknown]
